FAERS Safety Report 6375119-9 (Version None)
Quarter: 2009Q3

REPORT INFORMATION
  Report Type: 
  Country: None (occurrence: None)
  Receive Date: 20090924
  Receipt Date: 20090911
  Transmission Date: 20100115
  Serious: Yes (Other)
  Sender: FDA-Public Use
  Company Number: US-GENENTECH-290702

PATIENT

DRUGS (1)
  1. RITUXIMAB [Suspect]
     Indication: NEOPLASM MALIGNANT
     Route: 065

REACTIONS (5)
  - ANXIETY [None]
  - DEPRESSED MOOD [None]
  - FATIGUE [None]
  - INSOMNIA [None]
  - ORAL PAIN [None]
